FAERS Safety Report 5119548-X (Version None)
Quarter: 2006Q4

REPORT INFORMATION
  Report Type: 
  Country: None (occurrence: None)
  Receive Date: 20061003
  Receipt Date: 20060822
  Transmission Date: 20070319
  Serious: Yes (Hospitalization)
  Sender: FDA-Public Use
  Company Number: PHEH2006US10761

PATIENT
  Age: 47 Year
  Sex: Male

DRUGS (7)
  1. TEGRETOL [Suspect]
     Indication: DEPRESSION
     Dosage: 400 MG, BID
     Dates: start: 20060609, end: 20060709
  2. KLONOPIN [Concomitant]
  3. RITALIN [Concomitant]
  4. METAGLIP [Concomitant]
  5. LIPITOR                                 /NET/ [Concomitant]
  6. TRILEPTAL [Suspect]
     Indication: DEPRESSION
     Dosage: 600 MG, TID
     Dates: start: 20040101, end: 20060715
  7. TRILEPTAL [Suspect]
     Dates: start: 20060801

REACTIONS (5)
  - DIZZINESS [None]
  - MULTIPLE DRUG OVERDOSE INTENTIONAL [None]
  - MUSCULAR WEAKNESS [None]
  - SUICIDE ATTEMPT [None]
  - VISION BLURRED [None]
